FAERS Safety Report 6590784-9 (Version None)
Quarter: 2010Q1

REPORT INFORMATION
  Report Type: 
  Country: None (occurrence: None)
  Receive Date: 20100205
  Receipt Date: 20100122
  Transmission Date: 20100710
  Serious: Yes (Hospitalization)
  Sender: FDA-Public Use
  Company Number: 8040938

PATIENT
  Weight: 27.3 kg

DRUGS (5)
  1. KEPPRA [Suspect]
     Dosage: (1125 MG BID, DOSE FREQ.: DAILY TRANSPLACENTAL)
     Route: 064
     Dates: start: 20080307, end: 20081125
  2. LEVETIRACETAM [Suspect]
     Dosage: (1125 MG BID TRANSMAMMARY), (1125 MG BID TRANSPLACENTAL)
     Route: 063
     Dates: start: 20081126, end: 20081215
  3. LEVETIRACETAM [Suspect]
     Dosage: (1125 MG BID TRANSMAMMARY), (1125 MG BID TRANSPLACENTAL)
     Route: 063
     Dates: start: 20081215, end: 20090120
  4. VITAMIN TAB [Concomitant]
  5. LEXAPRO [Concomitant]

REACTIONS (6)
  - CONSTIPATION [None]
  - DEHYDRATION [None]
  - DRUG EXPOSURE VIA BREAST MILK [None]
  - JAUNDICE NEONATAL [None]
  - MATERNAL DRUGS AFFECTING FOETUS [None]
  - PREMATURE BABY [None]
